FAERS Safety Report 9177323 (Version 1)
Quarter: 2013Q1

REPORT INFORMATION
  Report Type: Spontaneous
  Country: BR (occurrence: BR)
  Receive Date: 20130321
  Receipt Date: 20130321
  Transmission Date: 20140127
  Serious: Yes (Life-Threatening)
  Sender: FDA-Public Use
  Company Number: PHHY2013BR026954

PATIENT
  Sex: Male

DRUGS (1)
  1. RASILEZ HCT [Suspect]
     Dosage: 1 DF (300 MG ALIS, 12.5 MD HYDR), UNK

REACTIONS (2)
  - Feeling abnormal [Unknown]
  - Cough [Unknown]
